FAERS Safety Report 8989978 (Version 1)
Quarter: 2012Q4

REPORT INFORMATION
  Report Type: 
  Country: GB (occurrence: GB)
  Receive Date: 20121228
  Receipt Date: 20121228
  Transmission Date: 20130627
  Serious: Yes (Life-Threatening, Hospitalization)
  Sender: FDA-Public Use
  Company Number: GB-WATSON-2012-22737

PATIENT
  Age: 85 Year
  Sex: Female
  Weight: 59 kg

DRUGS (5)
  1. SODIUM VALPROATE (UNKNOWN) [Suspect]
     Indication: CONVULSION
     Dosage: 300 mg, bid
     Route: 048
     Dates: start: 20120131, end: 20120411
  2. ASPIRIN [Concomitant]
     Indication: CEREBROVASCULAR ACCIDENT
     Dosage: 75 mg, daily
     Route: 048
     Dates: start: 20110201
  3. LEVOTHYROXINE [Concomitant]
     Indication: HYPOTHYROIDISM
     Dosage: 100 mcg, daily
     Route: 048
     Dates: start: 20111101
  4. SIMVASTATIN [Concomitant]
     Indication: CEREBROVASCULAR ACCIDENT
     Dosage: 40 mg, daily
     Route: 048
     Dates: start: 20110201, end: 20120411
  5. DIPYRIDAMOLE [Concomitant]
     Indication: SYNCOPE
     Dosage: 200 mg, bid
     Route: 048
     Dates: start: 20120201, end: 20120518

REACTIONS (7)
  - Jaundice [Recovering/Resolving]
  - Blood alkaline phosphatase increased [Recovering/Resolving]
  - Alanine aminotransferase increased [Recovering/Resolving]
  - Blood bilirubin increased [Recovering/Resolving]
  - Coagulopathy [Recovering/Resolving]
  - International normalised ratio abnormal [Recovering/Resolving]
  - Prothrombin time abnormal [Recovering/Resolving]
